FAERS Safety Report 9888197 (Version 1)
Quarter: 2014Q1

REPORT INFORMATION
  Report Type: Spontaneous
  Country: US (occurrence: None)
  Receive Date: 20140210
  Receipt Date: 20140210
  Transmission Date: 20141002
  Serious: No
  Sender: FDA-Public Use
  Company Number: None

PATIENT
  Age: 56 Year
  Sex: Female
  Weight: 89.36 kg

DRUGS (2)
  1. FLUOXETINE [Suspect]
     Indication: PREMENSTRUAL DYSPHORIC DISORDER
     Dosage: 1 CAP DAYS 1-15 THEN 2 CAPS ONCE DAILY TAKEN BY MOUTH
     Route: 048
     Dates: start: 20140105, end: 20140127
  2. FLUOXETINE [Suspect]
     Indication: ANXIETY
     Dosage: 1 CAP DAYS 1-15 THEN 2 CAPS ONCE DAILY TAKEN BY MOUTH
     Route: 048
     Dates: start: 20140105, end: 20140127

REACTIONS (4)
  - Product substitution issue [None]
  - Feeling abnormal [None]
  - Impaired work ability [None]
  - Burning sensation [None]
